FAERS Safety Report 7053799-2 (Version None)
Quarter: 2010Q4

REPORT INFORMATION
  Report Type: 
  Country: None (occurrence: None)
  Receive Date: 20101020
  Receipt Date: 20101014
  Transmission Date: 20110411
  Serious: Yes (Hospitalization)
  Sender: FDA-Public Use
  Company Number: DE-CEPHALON-2010005466

PATIENT
  Sex: Male
  Weight: 80 kg

DRUGS (6)
  1. ACTIQ [Suspect]
     Indication: NEURALGIA
     Route: 002
     Dates: end: 20100826
  2. PALLADONE [Concomitant]
     Dates: end: 20100826
  3. FENTANYL TTS [Concomitant]
     Dates: end: 20100826
  4. LYRICA [Concomitant]
     Dates: end: 20100912
  5. DOXEPIN HCL [Concomitant]
     Dates: end: 20100912
  6. PAROXETINE HCL [Concomitant]
     Dates: end: 20100912

REACTIONS (2)
  - DEPENDENCE [None]
  - DRUG ABUSE [None]
